FAERS Safety Report 12170185 (Version 8)
Quarter: 2019Q4

REPORT INFORMATION
  Report Type: Report from Study
  Country: CA (occurrence: CA)
  Receive Date: 20160311
  Receipt Date: 20191212
  Transmission Date: 20200122
  Serious: Yes (Other)
  Sender: FDA-Public Use
  Company Number: CA-ROCHE-1453023

PATIENT
  Age: 59 Year
  Sex: Female

DRUGS (20)
  1. IMURAN [Suspect]
     Active Substance: AZATHIOPRINE
     Indication: PRODUCT USED FOR UNKNOWN INDICATION
     Route: 065
  2. PREDNISONE. [Suspect]
     Active Substance: PREDNISONE
     Indication: PRODUCT USED FOR UNKNOWN INDICATION
     Route: 065
  3. OMEGA 3 [DOCOSAHEXAENOIC ACID;EICOSAPENTAENOIC ACID] [Concomitant]
     Active Substance: DOCONEXENT\ICOSAPENT
  4. DOCOSAHEXAENOIC ACID;EICOSAPENTAENOIC ACID;FISH OIL;OMEGA-3 FATTY ACID [Concomitant]
     Active Substance: DOCONEXENT\ ICOSAPENT\ FISH OIL\ OMEGA-3 FATTY ACIDS
  5. CLOBETASOL [Concomitant]
     Active Substance: CLOBETASOL
  6. DIPHENHYDRAMINE HCL [Concomitant]
     Active Substance: DIPHENHYDRAMINE HYDROCHLORIDE
     Route: 048
     Dates: start: 20160510
  7. COENZYME Q10 [Concomitant]
     Active Substance: UBIDECARENONE
  8. RITUXAN [Suspect]
     Active Substance: RITUXIMAB
     Indication: PEMPHIGUS
     Dosage: DATE OF LAST DOSE: 12/MAR/2014?RECENT RITUXIMAB INFUSION: 02/SEP/2014.
     Route: 042
     Dates: start: 20140226
  9. ACETAMINOPHEN. [Concomitant]
     Active Substance: ACETAMINOPHEN
     Indication: PREMEDICATION
     Route: 048
     Dates: start: 20140226, end: 20140902
  10. CLONIDINE. [Concomitant]
     Active Substance: CLONIDINE
  11. FUCIDIN [FUSIDIC ACID] [Concomitant]
     Active Substance: FUSIDIC ACID
  12. REFRESH PLUS [Concomitant]
     Active Substance: CARBOXYMETHYLCELLULOSE SODIUM
  13. ESOMEPRAZOLE. [Concomitant]
     Active Substance: ESOMEPRAZOLE MAGNESIUM
     Route: 065
  14. METHYLPREDNISOLONE. [Concomitant]
     Active Substance: METHYLPREDNISOLONE
     Indication: PREMEDICATION
     Route: 042
     Dates: start: 20140226, end: 20160426
  15. DIPHENHYDRAMINE HCL [Concomitant]
     Active Substance: DIPHENHYDRAMINE HYDROCHLORIDE
     Indication: PREMEDICATION
     Route: 048
     Dates: start: 20140226, end: 20160426
  16. LYDERM [FLUOCINONIDE] [Concomitant]
     Dosage: GEL AND CREAM
     Route: 065
  17. DHEA [Concomitant]
     Active Substance: PRASTERONE
  18. ACETAMINOPHEN. [Concomitant]
     Active Substance: ACETAMINOPHEN
     Route: 048
     Dates: start: 20160510
  19. METHYLPREDNISOLONE. [Concomitant]
     Active Substance: METHYLPREDNISOLONE
     Route: 042
     Dates: start: 20160510
  20. GRIFOLA FRONDOSA [Concomitant]

REACTIONS (14)
  - Exposure to communicable disease [Unknown]
  - Hot flush [Unknown]
  - Musculoskeletal pain [Unknown]
  - Pemphigus [Not Recovered/Not Resolved]
  - Blood pressure diastolic abnormal [Unknown]
  - Carpal tunnel syndrome [Unknown]
  - Blood pressure fluctuation [Unknown]
  - Off label use [Unknown]
  - Infusion related reaction [Recovered/Resolved]
  - Blood pressure systolic increased [Unknown]
  - Off label use [Unknown]
  - Hypothyroidism [Unknown]
  - Drug ineffective [Unknown]
  - Blood pressure increased [Unknown]

NARRATIVE: CASE EVENT DATE: 20140226
